FAERS Safety Report 7772617-8 (Version None)
Quarter: 2011Q3

REPORT INFORMATION
  Report Type: 
  Country: None (occurrence: None)
  Receive Date: 20110922
  Receipt Date: 20110121
  Transmission Date: 20111222
  Serious: No
  Sender: FDA-Public Use
  Company Number: US-ASTRAZENECA-2011SE03425

PATIENT
  Age: 42 Year
  Sex: Female
  Weight: 59 kg

DRUGS (10)
  1. RISPERDAL [Concomitant]
     Indication: PARANOIA
  2. CELEXA [Concomitant]
     Indication: ANXIETY
  3. KEPPRA [Concomitant]
     Indication: CONVULSION
  4. GEODON [Concomitant]
     Indication: PARANOIA
  5. LAMICTAL [Concomitant]
     Indication: CONVULSION
  6. TRAZODONE HYDROCHLORIDE [Concomitant]
     Indication: SLEEP DISORDER
  7. SEROQUEL XR [Suspect]
     Indication: SCHIZOAFFECTIVE DISORDER
     Route: 048
     Dates: start: 20110101
  8. TRILEPTAL [Concomitant]
     Indication: CONVULSION
  9. ATIVAN [Concomitant]
     Indication: PANIC ATTACK
  10. SEROQUEL XR [Suspect]
     Indication: SLEEP DISORDER
     Route: 048
     Dates: start: 20110101

REACTIONS (2)
  - OBESITY [None]
  - INCREASED APPETITE [None]
